FAERS Safety Report 5033686-1 (Version None)
Quarter: 2006Q2

REPORT INFORMATION
  Report Type: 
  Country: None (occurrence: None)
  Receive Date: 20060623
  Receipt Date: 20060619
  Transmission Date: 20061013
  Serious: Yes (Hospitalization)
  Sender: FDA-Public Use
  Company Number: B06000089

PATIENT
  Age: 46 Year
  Sex: Female
  Weight: 113 kg

DRUGS (1)
  1. AMOXICILLIN TRIHYDRATE + POTASSIUM CLAVULANATE [Suspect]
     Indication: LOCALISED INFECTION
     Dosage: 1G THREE TIMES PER DAY
     Route: 048
     Dates: start: 20060520, end: 20060525

REACTIONS (1)
  - PURPURA [None]
